FAERS Safety Report 19678917 (Version 2)
Quarter: 2021Q3

REPORT INFORMATION
  Report Type: Spontaneous
  Country: GB (occurrence: GB)
  Receive Date: 20210809
  Receipt Date: 20210913
  Transmission Date: 20211014
  Serious: Yes (Disabling)
  Sender: FDA-Public Use
  Company Number: GB-DEXPHARM-20211269

PATIENT
  Age: 43 Year
  Sex: Female
  Weight: 45.81 kg

DRUGS (5)
  1. OMEPRAZOLE. [Suspect]
     Active Substance: OMEPRAZOLE
     Indication: ABDOMINAL PAIN UPPER
     Route: 050
     Dates: start: 202012
  2. NIZATIDINE. [Suspect]
     Active Substance: NIZATIDINE
  3. OMEPRAZOLE. [Suspect]
     Active Substance: OMEPRAZOLE
     Indication: ABDOMINAL PAIN UPPER
     Route: 050
     Dates: start: 202009, end: 202011
  4. LANSOPRAZOLE. [Suspect]
     Active Substance: LANSOPRAZOLE
  5. NEXIUM [Suspect]
     Active Substance: ESOMEPRAZOLE MAGNESIUM

REACTIONS (4)
  - Diarrhoea [Recovered/Resolved with Sequelae]
  - Suicidal ideation [Recovered/Resolved with Sequelae]
  - Medication error [Unknown]
  - Weight decreased [Unknown]

NARRATIVE: CASE EVENT DATE: 202009
